FAERS Safety Report 18417922 (Version 8)
Quarter: 2023Q4

REPORT INFORMATION
  Report Type: Report from Study
  Country: JP (occurrence: JP)
  Receive Date: 20201022
  Receipt Date: 20231211
  Transmission Date: 20240109
  Serious: Yes (Death, Hospitalization)
  Sender: FDA-Public Use
  Company Number: JP-ABBVIE-19K-087-2987563-00

PATIENT
  Age: 81 Year
  Sex: Male
  Weight: 54 kg

DRUGS (13)
  1. CARBIDOPA\LEVODOPA [Suspect]
     Active Substance: CARBIDOPA\LEVODOPA
     Indication: Parkinson^s disease
     Dosage: MD: 5.5 ML?CD: 2.1 ML/HR  16 HRS?ED: 1.0 ML/UNIT 2 TIMES?20 MG/ML 5 MG/ML
     Route: 050
     Dates: start: 20191206, end: 20200110
  2. CARBIDOPA\LEVODOPA [Suspect]
     Active Substance: CARBIDOPA\LEVODOPA
     Indication: Parkinson^s disease
     Dosage: MD: 5.5 ML CD: 2.2 ML/HR ED: 1.0 ML/UNIT
     Route: 050
     Dates: start: 20200110, end: 20200110
  3. CARBIDOPA\LEVODOPA [Suspect]
     Active Substance: CARBIDOPA\LEVODOPA
     Dosage: MD: 5.5 ML CD: 2.2 ML/HR ED: 1.0 ML/UNIT
     Route: 050
     Dates: start: 20200207, end: 20200626
  4. CARBIDOPA\LEVODOPA [Suspect]
     Active Substance: CARBIDOPA\LEVODOPA
     Dosage: MD: 5.5 ML, CD: 2.3 ML/HR 16 HRS, ED: 1.1 ML/UNIT 2 HRS
     Route: 050
     Dates: start: 20200626, end: 20201015
  5. SOLIFENACIN SUCCINATE [Concomitant]
     Active Substance: SOLIFENACIN SUCCINATE
     Indication: Product used for unknown indication
     Route: 048
     Dates: end: 20200709
  6. ROTIGOTINE [Concomitant]
     Active Substance: ROTIGOTINE
     Indication: Parkinson^s disease
     Route: 062
     Dates: end: 20191111
  7. ROTIGOTINE [Concomitant]
     Active Substance: ROTIGOTINE
     Indication: Parkinson^s disease
     Route: 062
     Dates: end: 20191111
  8. MAGNESIUM OXIDE [Concomitant]
     Active Substance: MAGNESIUM OXIDE
     Indication: Product used for unknown indication
     Route: 048
     Dates: end: 20200703
  9. PRAVASTATIN SODIUM [Concomitant]
     Active Substance: PRAVASTATIN SODIUM
     Indication: Product used for unknown indication
     Route: 048
     Dates: end: 20200731
  10. MONTELUKAST SODIUM [Concomitant]
     Active Substance: MONTELUKAST SODIUM
     Indication: Product used for unknown indication
     Route: 048
     Dates: end: 20200731
  11. IMIDAPRIL HYDROCHLORIDE [Concomitant]
     Active Substance: IMIDAPRIL HYDROCHLORIDE
     Indication: Product used for unknown indication
     Route: 048
     Dates: end: 20200709
  12. LANSOPRAZOLE [Concomitant]
     Active Substance: LANSOPRAZOLE
     Indication: Product used for unknown indication
     Route: 048
     Dates: end: 20200712
  13. CLONAZEPAM-R [Concomitant]
     Indication: Product used for unknown indication
     Route: 048
     Dates: end: 20200711

REACTIONS (14)
  - Parkinson^s disease [Fatal]
  - On and off phenomenon [Unknown]
  - Cellulitis [Recovering/Resolving]
  - Pneumonia aspiration [Recovering/Resolving]
  - Mobility decreased [Unknown]
  - Hypoacusis [Unknown]
  - Unintentional medical device removal [Recovered/Resolved]
  - Visual impairment [Unknown]
  - Pain in extremity [Recovering/Resolving]
  - Fatigue [Unknown]
  - Therapeutic product effect decreased [Unknown]
  - Parkinson^s disease [Recovered/Resolved]
  - Somnolence [Unknown]
  - Device use issue [Unknown]

NARRATIVE: CASE EVENT DATE: 20190101
